FAERS Safety Report 10452991 (Version 2)
Quarter: 2014Q3

REPORT INFORMATION
  Report Type: Spontaneous
  Country: FR (occurrence: FR)
  Receive Date: 20140915
  Receipt Date: 20140926
  Transmission Date: 20150326
  Serious: Yes (Hospitalization)
  Sender: FDA-Public Use
  Company Number: FR-PFIZER INC-2014250626

PATIENT
  Age: 15 Year
  Sex: Male

DRUGS (8)
  1. RHINOTROPHYL [Suspect]
     Active Substance: FRAMYCETIN\MONOETHANOLAMINE
     Indication: PYREXIA
     Dosage: UNK
     Route: 045
     Dates: start: 20071015, end: 20071020
  2. ADVIL [Suspect]
     Active Substance: IBUPROFEN
     Indication: NASOPHARYNGITIS
  3. ADVIL [Suspect]
     Active Substance: IBUPROFEN
     Indication: PYREXIA
     Dosage: UNK
     Route: 048
     Dates: start: 20071015, end: 20071020
  4. RHINOTROPHYL [Suspect]
     Active Substance: FRAMYCETIN\MONOETHANOLAMINE
     Indication: NASOPHARYNGITIS
  5. TOPLEXIL [Suspect]
     Active Substance: UNSPECIFIED INGREDIENT
     Indication: PYREXIA
     Dosage: UNK
     Route: 048
     Dates: start: 20071015, end: 20071020
  6. TOPLEXIL [Suspect]
     Active Substance: UNSPECIFIED INGREDIENT
     Indication: NASOPHARYNGITIS
  7. AUGMENTIN [Suspect]
     Active Substance: AMOXICILLIN\CLAVULANATE POTASSIUM
     Indication: PYREXIA
     Dosage: UNK
     Route: 048
     Dates: start: 20071015, end: 20071020
  8. AUGMENTIN [Suspect]
     Active Substance: AMOXICILLIN\CLAVULANATE POTASSIUM
     Indication: NASOPHARYNGITIS

REACTIONS (2)
  - Erythema multiforme [Recovered/Resolved]
  - Mycoplasma infection [Recovered/Resolved]

NARRATIVE: CASE EVENT DATE: 2007
